FAERS Safety Report 5008508-5 (Version None)
Quarter: 2006Q2

REPORT INFORMATION
  Report Type: 
  Country: None (occurrence: None)
  Receive Date: 20060522
  Receipt Date: 20060522
  Transmission Date: 20061013
  Serious: No
  Sender: FDA-Public Use
  Company Number: None

PATIENT

DRUGS (1)
  1. LEVAQUIN [Suspect]
     Indication: PNEUMONIA
     Dosage: ONE TAB  DAILY  PO
     Route: 048
     Dates: start: 20060514, end: 20060516

REACTIONS (1)
  - HYPOGLYCAEMIA [None]
